FAERS Safety Report 7830657-4 (Version None)
Quarter: 2011Q4

REPORT INFORMATION
  Report Type: 
  Country: None (occurrence: None)
  Receive Date: 20111021
  Receipt Date: 20111017
  Transmission Date: 20120403
  Serious: Yes (Other)
  Sender: FDA-Public Use
  Company Number: US-PFIZER INC-2009239307

PATIENT
  Sex: Female
  Weight: 79.37 kg

DRUGS (3)
  1. DILANTIN-125 [Suspect]
     Indication: CONVULSION
     Dosage: 430 MG, 1X/DAY
  2. DILANTIN [Suspect]
     Indication: CONVULSION
     Dosage: UNK
     Route: 048
     Dates: start: 19750101
  3. PHENYTOIN [Suspect]
     Indication: CONVULSION
     Dosage: UNK

REACTIONS (3)
  - ANTICONVULSANT DRUG LEVEL INCREASED [None]
  - ANTICONVULSANT DRUG LEVEL DECREASED [None]
  - CONVULSION [None]
